FAERS Safety Report 22354236 (Version 1)
Quarter: 2023Q2

REPORT INFORMATION
  Report Type: Spontaneous
  Country: US (occurrence: US)
  Receive Date: 20230523
  Receipt Date: 20230523
  Transmission Date: 20230721
  Serious: Yes (Hospitalization, Other)
  Sender: FDA-Public Use
  Company Number: US-Accord-359106

PATIENT
  Age: 50 Year
  Sex: Female
  Weight: 17.64 kg

DRUGS (3)
  1. LACOSAMIDE [Suspect]
     Active Substance: LACOSAMIDE
     Indication: Seizure prophylaxis
     Dosage: 200MG TWICE DAILY ADMINISTERED VIA?PEG
  2. LEVETIRACETAM [Concomitant]
     Active Substance: LEVETIRACETAM
     Indication: Seizure prophylaxis
     Dosage: 1500MG TWICE DAILY ADMINISTERED VIA PEG
  3. LACOSAMIDE [Suspect]
     Active Substance: LACOSAMIDE
     Indication: Seizure prophylaxis
     Dosage: 300MG TWICE DAILY

REACTIONS (13)
  - Dysphagia [Recovered/Resolved]
  - Somnolence [Recovered/Resolved]
  - Vomiting [Recovered/Resolved]
  - Dizziness [Recovered/Resolved]
  - Arterial stenosis [Recovered/Resolved]
  - Disturbance in attention [Recovered/Resolved]
  - Hyperhidrosis [Recovered/Resolved]
  - Systolic hypertension [Recovered/Resolved]
  - Sinus tachycardia [Recovered/Resolved]
  - Diplopia [Recovered/Resolved]
  - Hypoperfusion [Recovered/Resolved]
  - Head injury [Recovered/Resolved]
  - Fall [Unknown]
